FAERS Safety Report 26171632 (Version 1)
Quarter: 2025Q4

REPORT INFORMATION
  Report Type: Spontaneous
  Country: US (occurrence: US)
  Receive Date: 20251217
  Receipt Date: 20251217
  Transmission Date: 20260119
  Serious: No
  Sender: IMPEL NEUROPHARMA
  Company Number: US-IMPEL-2025-US-047247

PATIENT
  Age: 35 Year
  Sex: Female
  Weight: 79.38 kg

DRUGS (5)
  1. ATORVASTATIN [Concomitant]
     Active Substance: ATORVASTATIN
  2. ESTARYLLA [Concomitant]
     Active Substance: ETHINYL ESTRADIOL\NORGESTIMATE
  3. UBRELVY [Concomitant]
     Active Substance: UBROGEPANT
  4. magnesium glycine [Concomitant]
  5. TRUDHESA [Suspect]
     Active Substance: DIHYDROERGOTAMINE MESYLATE
     Indication: Migraine
     Dosage: 1 INTRANASALLY SPRAY EACH NOSTRIL, 1 TIME
     Route: 045
     Dates: start: 20251017, end: 20251017

REACTIONS (4)
  - Hot flush [Recovered/Resolved]
  - Feeling cold [Recovered/Resolved]
  - Blood pressure increased [Recovered/Resolved]
  - Nausea [Recovered/Resolved]

NARRATIVE: CASE EVENT DATE: 20251017
